FAERS Safety Report 5755804-X (Version None)
Quarter: 2008Q2

REPORT INFORMATION
  Report Type: 
  Country: None (occurrence: None)
  Receive Date: 20080528
  Receipt Date: 20080513
  Transmission Date: 20081010
  Serious: No
  Sender: FDA-Public Use
  Company Number: 2007-166574-NL

PATIENT
  Age: 71 Year
  Sex: Male

DRUGS (9)
  1. ROCURONIUM BROMIDE [Suspect]
     Indication: HYPOTONIA
     Dosage: 0.9 MG/KG ONCE/10 MG ONCE/NI; INTRAVENOUS (NOS)
     Route: 042
     Dates: start: 20071023, end: 20071023
  2. ROCURONIUM BROMIDE [Suspect]
     Indication: HYPOTONIA
     Dosage: 0.9 MG/KG ONCE/10 MG ONCE/NI; INTRAVENOUS (NOS)
     Route: 042
     Dates: start: 20071023, end: 20071023
  3. ROCURONIUM BROMIDE [Suspect]
     Indication: HYPOTONIA
     Dosage: 0.9 MG/KG ONCE/10 MG ONCE/NI; INTRAVENOUS (NOS)
     Route: 042
     Dates: start: 20071023, end: 20071023
  4. MORPHINE HCL ELIXIR [Suspect]
     Indication: ANALGESIA
     Dosage: 2 MG ONCE; EPIDURAL
     Route: 008
     Dates: start: 20071023, end: 20071023
  5. SEVOFLURANE [Concomitant]
  6. PROPOFOL [Concomitant]
  7. REMIFENTANIL HYDROCHLORIDE [Concomitant]
  8. LIDOCAINE [Concomitant]
  9. CEFMETAZOLE SODIUM [Concomitant]

REACTIONS (3)
  - DRUG EFFECT DECREASED [None]
  - DYSPNOEA [None]
  - HYPOVENTILATION [None]
